FAERS Safety Report 24350898 (Version 1)
Quarter: 2024Q3

REPORT INFORMATION
  Report Type: Report from Study
  Country: CN (occurrence: CN)
  Receive Date: 20240923
  Receipt Date: 20240923
  Transmission Date: 20241016
  Serious: No
  Sender: ROCHE
  Company Number: CN-ROCHE-3536234

PATIENT

DRUGS (2)
  1. TRASTUZUMAB [Suspect]
     Active Substance: TRASTUZUMAB
     Indication: Gastric cancer
     Dosage: FOR 90 MINUTES
     Route: 041
  2. TRASTUZUMAB [Suspect]
     Active Substance: TRASTUZUMAB
     Dosage: FOR 30 TO 90 MINUTES, A TOTAL OF 6 CYCLES OF TREATMENT
     Route: 041

REACTIONS (5)
  - White blood cell count decreased [Unknown]
  - Neutrophil count decreased [Unknown]
  - Platelet count decreased [Unknown]
  - Nausea [Unknown]
  - Vomiting [Unknown]
